FAERS Safety Report 13113710 (Version 1)
Quarter: 2017Q1

REPORT INFORMATION
  Report Type: Spontaneous
  Country: FR (occurrence: FR)
  Receive Date: 20170113
  Receipt Date: 20170113
  Transmission Date: 20170428
  Serious: Yes (Hospitalization)
  Sender: FDA-Public Use
  Company Number: FR-PFIZER INC-2017008603

PATIENT
  Age: 17 Year
  Sex: Female

DRUGS (16)
  1. AMIKACIN [Concomitant]
     Active Substance: AMIKACIN
     Dosage: 1 G, DAILY
     Dates: start: 20161215
  2. ZITHROMAX [Concomitant]
     Active Substance: AZITHROMYCIN DIHYDRATE
     Indication: MYCOBACTERIUM ABSCESSUS INFECTION
  3. TIENAM [Concomitant]
     Active Substance: CILASTATIN SODIUM\IMIPENEM
     Dosage: 1 G, 3X/DAY
     Dates: start: 20161215
  4. RELVAR ELLIPTA [Concomitant]
     Active Substance: FLUTICASONE FUROATE\VILANTEROL TRIFENATATE
  5. TYGACIL [Suspect]
     Active Substance: TIGECYCLINE
     Indication: MYCOBACTERIAL INFECTION
     Dosage: 50 MG, 2X/DAY
     Route: 042
     Dates: start: 20161209, end: 20161211
  6. ZITHROMAX [Concomitant]
     Active Substance: AZITHROMYCIN DIHYDRATE
     Indication: INFECTIOUS DISEASE CARRIER
  7. NOXAFIL [Concomitant]
     Active Substance: POSACONAZOLE
     Indication: INFECTIOUS DISEASE CARRIER
  8. VENTILASTIN [Concomitant]
     Active Substance: ALBUTEROL SULFATE
  9. NOXAFIL [Concomitant]
     Active Substance: POSACONAZOLE
     Indication: MYCOBACTERIUM ABSCESSUS INFECTION
  10. AMIKACIN [Concomitant]
     Active Substance: AMIKACIN
     Indication: INFECTIOUS DISEASE CARRIER
     Dosage: UNK
  11. AVAMYS [Concomitant]
     Active Substance: FLUTICASONE FUROATE
     Dosage: UNK
  12. TYGACIL [Suspect]
     Active Substance: TIGECYCLINE
     Dosage: 50 MG, 2X/DAY
     Dates: start: 20161215
  13. AMIKACIN [Concomitant]
     Active Substance: AMIKACIN
     Indication: MYCOBACTERIUM ABSCESSUS INFECTION
     Dosage: 1 G, DAILY
     Dates: start: 20161209
  14. TIENAM [Concomitant]
     Active Substance: CILASTATIN SODIUM\IMIPENEM
     Indication: MYCOBACTERIUM ABSCESSUS INFECTION
     Dosage: 1 G, 3X/DAY
     Dates: start: 20161209
  15. SPIRIVA [Concomitant]
     Active Substance: TIOTROPIUM BROMIDE MONOHYDRATE
     Dosage: UNK
  16. TIENAM [Concomitant]
     Active Substance: CILASTATIN SODIUM\IMIPENEM
     Indication: INFECTIOUS DISEASE CARRIER
     Dosage: UNK

REACTIONS (2)
  - Pancreatitis acute [Recovered/Resolved]
  - Lipase increased [Recovered/Resolved]

NARRATIVE: CASE EVENT DATE: 20161211
